FAERS Safety Report 6179699-8 (Version None)
Quarter: 2009Q2

REPORT INFORMATION
  Report Type: 
  Country: None (occurrence: None)
  Receive Date: 20090505
  Receipt Date: 20090423
  Transmission Date: 20091009
  Serious: Yes (Other)
  Sender: FDA-Public Use
  Company Number: US-WYE-H09138209

PATIENT
  Sex: Female
  Weight: 55.39 kg

DRUGS (3)
  1. PREMPRO [Suspect]
     Indication: HORMONE REPLACEMENT THERAPY
     Dosage: STARTED ON 0.625MG/2.5MG, DECREASED OVER THE YEARS TO 0.45MG
     Route: 048
     Dates: start: 19860101
  2. VITAMINS [Concomitant]
     Dosage: UNKNOWN
     Route: 065
  3. POTASSIUM CHLORIDE [Concomitant]
     Dosage: UNKNOWN
     Route: 065

REACTIONS (6)
  - DRUG INEFFECTIVE [None]
  - DRUG WITHDRAWAL SYNDROME [None]
  - FATIGUE [None]
  - INSOMNIA [None]
  - PREMATURE AGEING [None]
  - SYNCOPE [None]
